FAERS Safety Report 6668188-X (Version None)
Quarter: 2010Q2

REPORT INFORMATION
  Report Type: 
  Country: None (occurrence: None)
  Receive Date: 20100405
  Receipt Date: 20100405
  Transmission Date: 20101027
  Serious: Yes (Other)
  Sender: FDA-Public Use
  Company Number: None

PATIENT
  Age: 65 Year
  Sex: Male
  Weight: 74.8435 kg

DRUGS (1)
  1. SOTALOL HCL [Suspect]
     Indication: CARDIAC DISORDER
     Dosage: 120MG EVERY 12 HOURS PO
     Route: 048
     Dates: start: 20100302, end: 20100329

REACTIONS (2)
  - HEART RATE INCREASED [None]
  - PRODUCT SUBSTITUTION ISSUE [None]
